FAERS Safety Report 10058623 (Version 1)
Quarter: 2014Q2

REPORT INFORMATION
  Report Type: Spontaneous
  Country: US (occurrence: US)
  Receive Date: 20140404
  Receipt Date: 20140404
  Transmission Date: 20141212
  Serious: Yes (Hospitalization)
  Sender: FDA-Public Use
  Company Number: US-LUNDBECK-DKLU1098777

PATIENT
  Age: 20 Year
  Sex: Female

DRUGS (3)
  1. SABRIL     (TABLET) [Suspect]
     Indication: EPILEPSY
     Route: 048
     Dates: start: 20130508
  2. SABRIL     (TABLET) [Suspect]
     Route: 048
     Dates: start: 20130508
  3. SABRIL     (TABLET) [Suspect]
     Route: 048
     Dates: start: 20130508

REACTIONS (1)
  - Urinary tract infection [Unknown]
